FAERS Safety Report 4607514-X (Version None)
Quarter: 2005Q1

REPORT INFORMATION
  Report Type: 
  Country: None (occurrence: None)
  Receive Date: 20050309
  Receipt Date: 20050228
  Transmission Date: 20050727
  Serious: Yes (Death, Hospitalization)
  Sender: FDA-Public Use
  Company Number: 2005-02-0860

PATIENT
  Age: 47 Year
  Sex: Male
  Weight: 90 kg

DRUGS (2)
  1. BETAMETHASONE SODIUM PHOSPHATE [Suspect]
     Indication: EAR PAIN
     Dosage: 1 ML INTRAMUSCULAR
     Route: 030
     Dates: start: 20050125, end: 20050125
  2. BETAMETHASONE SODIUM PHOSPHATE [Suspect]
     Indication: TORTICOLLIS
     Dosage: 1 ML INTRAMUSCULAR
     Route: 030
     Dates: start: 20050125, end: 20050125

REACTIONS (1)
  - INFARCTION [None]
